FAERS Safety Report 8883597 (Version 1)
Quarter: 2012Q4

REPORT INFORMATION
  Report Type: 
  Country: US (occurrence: US)
  Receive Date: 20121102
  Receipt Date: 20121102
  Transmission Date: 20130627
  Serious: No
  Sender: FDA-Public Use
  Company Number: US-ASTRAZENECA-2012SE01999

PATIENT
  Sex: Female

DRUGS (1)
  1. CRESTOR [Suspect]
     Route: 048

REACTIONS (9)
  - Adverse drug reaction [Unknown]
  - Chest discomfort [Unknown]
  - Dyspnoea [Unknown]
  - Asthma [Unknown]
  - Nausea [Unknown]
  - Headache [Unknown]
  - Dizziness [Unknown]
  - Low density lipoprotein increased [Unknown]
  - Incorrect dose administered [Unknown]
